FAERS Safety Report 5760970-6 (Version None)
Quarter: 2008Q2

REPORT INFORMATION
  Report Type: 
  Country: None (occurrence: None)
  Receive Date: 20080606
  Receipt Date: 20070312
  Transmission Date: 20081010
  Serious: No
  Sender: FDA-Public Use
  Company Number: US-ASTRAZENECA-2007UW04781

PATIENT
  Age: 746 Month
  Sex: Male
  Weight: 76.7 kg

DRUGS (15)
  1. PRILOSEC [Suspect]
     Indication: GASTROOESOPHAGEAL REFLUX DISEASE
     Route: 048
     Dates: start: 19970101, end: 20060726
  2. CORTISONE [Concomitant]
  3. PLAVIX [Concomitant]
  4. AVANDIA [Concomitant]
  5. LIPITOR [Concomitant]
  6. SYNTHROID [Concomitant]
  7. DIGOXIN [Concomitant]
  8. TOPROL-XL [Concomitant]
  9. POTASSIUM CHLORIDE [Concomitant]
  10. FUROSEMIDE [Concomitant]
  11. FOLIC ACID [Concomitant]
  12. CALCIUM [Concomitant]
  13. ASCORBIC ACID [Concomitant]
  14. MAGNESIUM [Concomitant]
  15. MULTI-VITAMIN [Concomitant]

REACTIONS (5)
  - ARTHRALGIA [None]
  - BONE PAIN [None]
  - CALCIUM DEFICIENCY [None]
  - FATIGUE [None]
  - NECK PAIN [None]
